FAERS Safety Report 5096705-2 (Version None)
Quarter: 2006Q3

REPORT INFORMATION
  Report Type: 
  Country: None (occurrence: None)
  Receive Date: 20060831
  Receipt Date: 20060724
  Transmission Date: 20061208
  Serious: Yes (Other)
  Sender: FDA-Public Use
  Company Number: 2006BH012205

PATIENT
  Age: 63 Year
  Sex: Male

DRUGS (2)
  1. EXTRANEAL [Suspect]
     Indication: PERITONEAL DIALYSIS
     Dosage: 2 L; EVERY DAY; IP
     Dates: start: 20050801, end: 20060801
  2. PHYSIONEAL 40 [Concomitant]

REACTIONS (4)
  - CATHETER SITE PAIN [None]
  - CATHETER SITE RELATED REACTION [None]
  - PHARMACEUTICAL PRODUCT COMPLAINT [None]
  - PURULENT DISCHARGE [None]
